FAERS Safety Report 7742584 (Version 5)
Quarter: 2012Q4

REPORT INFORMATION
  Report Type: 
  Country: US (occurrence: US)
  Receive Date: 20101229
  Receipt Date: 20121128
  Transmission Date: 20130627
  Serious: Yes (Other)
  Sender: FDA-Public Use
  Company Number: US-BAYER-2010-007885

PATIENT
  Age: 38 Year
  Sex: Female
  Weight: 57 kg

DRUGS (3)
  1. YASMIN [Suspect]
     Indication: ACNE
     Dosage: UNK
     Dates: start: 2003
  2. YASMIN [Suspect]
     Indication: ORAL CONTRACEPTION
  3. SINGULAIR [Concomitant]
     Dosage: UNK
     Dates: start: 20070430

REACTIONS (3)
  - Pain [Recovered/Resolved]
  - Deep vein thrombosis [Recovered/Resolved]
  - Thrombosis [None]
